FAERS Safety Report 13377606 (Version 1)
Quarter: 2017Q1

REPORT INFORMATION
  Report Type: Spontaneous
  Country: US (occurrence: US)
  Receive Date: 20170328
  Receipt Date: 20170328
  Transmission Date: 20170429
  Serious: Yes (Other)
  Sender: FDA-Public Use
  Company Number: US-PFIZER INC-2017125489

PATIENT
  Age: 72 Year
  Sex: Female

DRUGS (35)
  1. ALENDRONATE [Concomitant]
     Active Substance: ALENDRONATE SODIUM
     Dosage: 70 MG, UNK
     Dates: start: 20150715
  2. LANTUS [Concomitant]
     Active Substance: INSULIN GLARGINE
     Dosage: 100 IU/ML, UNK, (SUBCUTANEOUS SOLUTION)
     Dates: start: 20150703
  3. SODIUM POLYSTYRENE SULFONATE. [Concomitant]
     Active Substance: SODIUM POLYSTYRENE SULFONATE
     Dosage: 1 DF (15 GRAM/60 ML ), 1X/DAY
     Route: 048
  4. PROCRIT [Concomitant]
     Active Substance: ERYTHROPOIETIN
     Indication: ANAEMIA
     Dosage: 40000 IU, UNK, (NON-ESRD ) (MAXIMUM DOSE OF ONE OR MORE DRUGS WAS REACHED)
     Dates: start: 20160115, end: 20160115
  5. NEUPOGEN [Concomitant]
     Active Substance: FILGRASTIM
     Indication: AGRANULOCYTOSIS
  6. IBRANCE [Suspect]
     Active Substance: PALBOCICLIB
     Dosage: 100 MG, DAILY ( 1 P.O. Q.DAY FOR 21 DAYS EVERY 28 DAYS)
     Route: 048
     Dates: start: 20170106
  7. CALCIUM [Concomitant]
     Active Substance: CALCIUM
     Dosage: 600 MG, UNK
     Dates: start: 20160212
  8. CARVEDILOL. [Concomitant]
     Active Substance: CARVEDILOL
     Dosage: 12.5 MG, UNK
     Dates: start: 20150709
  9. NOVOLOG [Concomitant]
     Active Substance: INSULIN ASPART
     Dosage: 100 IU/ML, UNK, (SUBCUTANEOUS SOLUTION)
     Route: 058
     Dates: start: 20160212
  10. POTASSIUM CHLORIDE. [Concomitant]
     Active Substance: POTASSIUM CHLORIDE
     Dosage: 10 MEQ, DAILY (1 P.O.Q.DAY)
     Route: 048
     Dates: start: 20160728
  11. ATORVASTATIN [Concomitant]
     Active Substance: ATORVASTATIN
     Dosage: 40 MG, UNK
     Dates: start: 20150708
  12. FUROSEMIDE. [Concomitant]
     Active Substance: FUROSEMIDE
     Dosage: 20 MG, DAILY (1 P.O. Q.DAY)
     Route: 048
     Dates: start: 20160704
  13. FUROSEMIDE. [Concomitant]
     Active Substance: FUROSEMIDE
     Dosage: 20 MG, DAILY (1 P.O. Q.DA)
     Route: 048
     Dates: start: 20160728
  14. FUROSEMIDE. [Concomitant]
     Active Substance: FUROSEMIDE
     Dosage: 20 MG, DAILY
     Route: 048
     Dates: start: 20161004
  15. IBRANCE [Suspect]
     Active Substance: PALBOCICLIB
     Indication: BREAST CANCER FEMALE
     Dosage: 125 MG, DAILY ( 1 TABLET DAILY FOR 21 DAYS THEN OFF FOR 1 WEEK AND REPEAT)
     Dates: start: 20160212
  16. CENTRUM SILVER [Concomitant]
     Active Substance: MINERALS\VITAMINS
     Dosage: UNK, (400 MCG-250 MCG)
     Dates: start: 20160212
  17. FEMARA [Concomitant]
     Active Substance: LETROZOLE
     Dosage: 2.5 MG, 1X/DAY (1 TABLET DAILY)
     Dates: start: 20160630
  18. LEVOTHYROXINE. [Concomitant]
     Active Substance: LEVOTHYROXINE
     Dosage: 150 UG, UNK
     Dates: start: 20150623
  19. VITAMIN B-1 [Concomitant]
     Active Substance: THIAMINE
     Dosage: 100 MG, DAILY, (1 P.O. DAY)
     Route: 048
  20. XGEVA [Concomitant]
     Active Substance: DENOSUMAB
     Indication: BREAST CANCER METASTATIC
     Dosage: 120 MG, CYCLIC, (Q28D WITH HYDRATION AND ELECTROLYTES PREMED FOR 48 CYCLES V3.0)
     Dates: start: 20150731
  21. GRANIX [Suspect]
     Active Substance: TBO-FILGRASTIM
     Indication: BREAST CANCER METASTATIC
     Dosage: 480 UG, 1X/DAY (480 MCG SQ QD)
     Dates: start: 20160610, end: 20161104
  22. FENOFIBRATE. [Concomitant]
     Active Substance: FENOFIBRATE
     Dosage: 67 MG, UNK, (MICRONIZED )
     Dates: start: 20150720
  23. VITAMIN D2 [Concomitant]
     Active Substance: ERGOCALCIFEROL
     Dosage: 50000 IU, WEEKLY, (TAKE 1 CAPSULE WEEKLY FOR 12 WEEKS)
  24. IRON [Concomitant]
     Active Substance: IRON
     Dosage: 325 MG (65 MG IRON), UNK
     Dates: start: 20160212
  25. KLOR-CON [Concomitant]
     Active Substance: POTASSIUM CHLORIDE
     Dosage: 10 MEQ, UNK, (1 PO Q MWF)
     Route: 048
     Dates: start: 20160226
  26. LASIX [Concomitant]
     Active Substance: FUROSEMIDE
     Dosage: 20 MG, UNK, (1 PO QMWF)
     Route: 048
     Dates: start: 20160226
  27. LETROZOLE. [Concomitant]
     Active Substance: LETROZOLE
     Dosage: 2.5 MG, DAILY (1 P.O.Q.DAY)
     Route: 048
     Dates: start: 20151218
  28. OMEPRAZOLE. [Concomitant]
     Active Substance: OMEPRAZOLE
     Dosage: 20 MG, UNK, (DELAYED RELEASE)
     Dates: start: 20150716
  29. POTASSIUM CHLORIDE. [Concomitant]
     Active Substance: POTASSIUM CHLORIDE
     Dosage: 10 MEQ, UNK (1 TABLET EVERY MONDAY WEDNESDAY AND FRIDAY)
     Dates: start: 20160504
  30. VITAMIN D2 [Concomitant]
     Active Substance: ERGOCALCIFEROL
     Dosage: UNK
  31. GRANIX [Suspect]
     Active Substance: TBO-FILGRASTIM
     Dosage: 480 UG, 1X/DAY (480 MCG SQ QD)
     Dates: start: 20161118
  32. BRILINTA [Concomitant]
     Active Substance: TICAGRELOR
     Dosage: 180 MG, DAILY (2 P.O. Q. DAY)
     Route: 048
     Dates: start: 20160212
  33. LASIX [Concomitant]
     Active Substance: FUROSEMIDE
     Dosage: 20 MG, UNK (1 TABLET EVERY MONDAY WEDNESDAY AND FRIDAY)
     Dates: start: 20160504
  34. LETROZOLE. [Concomitant]
     Active Substance: LETROZOLE
     Dosage: UNK
     Dates: start: 20160212
  35. NEUPOGEN [Concomitant]
     Active Substance: FILGRASTIM
     Indication: ANAEMIA
     Dosage: 480 UG, UNK
     Dates: start: 20160212, end: 20160429

REACTIONS (5)
  - Haemorrhage [Unknown]
  - Nausea [Unknown]
  - Agranulocytosis [Unknown]
  - Chronic kidney disease [Unknown]
  - Iron deficiency anaemia [Unknown]

NARRATIVE: CASE EVENT DATE: 20160212
